FAERS Safety Report 19375187 (Version 4)
Quarter: 2021Q3

REPORT INFORMATION
  Report Type: Spontaneous
  Country: US (occurrence: US)
  Receive Date: 20210604
  Receipt Date: 20210915
  Transmission Date: 20211014
  Serious: Yes (Other)
  Sender: FDA-Public Use
  Company Number: US-BAYER-2021-148089

PATIENT
  Age: 8 Year
  Sex: Male

DRUGS (3)
  1. KOGENATE FS [Suspect]
     Active Substance: ANTIHEMOPHILIC FACTOR, HUMAN RECOMBINANT
     Dosage: 2 DF; TO TREAT RIGHT THUMB INJURY/BLEED
     Dates: start: 2021
  2. KOGENATE FS [Suspect]
     Active Substance: ANTIHEMOPHILIC FACTOR, HUMAN RECOMBINANT
     Dosage: 1 DF, ONCE; FOR BRUISE ON RIGHT WRIST
     Dates: start: 20210825
  3. KOGENATE FS [Suspect]
     Active Substance: ANTIHEMOPHILIC FACTOR, HUMAN RECOMBINANT
     Dosage: 1375 IU
     Route: 042

REACTIONS (7)
  - Fall [Recovered/Resolved]
  - Traumatic haemorrhage [Recovered/Resolved]
  - Contusion [Recovered/Resolved]
  - Haemarthrosis [Recovered/Resolved]
  - Device issue [Recovered/Resolved]
  - Joint injury [Recovered/Resolved]
  - Limb injury [Recovered/Resolved]

NARRATIVE: CASE EVENT DATE: 2021
